FAERS Safety Report 9219343 (Version 1)
Quarter: 2013Q1

REPORT INFORMATION
  Report Type: Spontaneous
  Country: US (occurrence: US)
  Receive Date: 20120830
  Receipt Date: 20120830
  Transmission Date: 20140127
  Serious: Yes (Other)
  Sender: FDA-Public Use
  Company Number: PHEH2011US01336

PATIENT
  Age: 59 Year
  Sex: Female

DRUGS (1)
  1. SANDOSTATIN LAR DEPOT [Suspect]
     Indication: CARCINOID SYNDROME
     Route: 030

REACTIONS (6)
  - Neoplasm progression [None]
  - Malaise [None]
  - Hepatic neoplasm [None]
  - Flushing [None]
  - Diarrhoea [None]
  - Fatigue [None]
